FAERS Safety Report 15170485 (Version 2)
Quarter: 2019Q2

REPORT INFORMATION
  Report Type: Report from Study
  Country: BR (occurrence: BR)
  Receive Date: 20180720
  Receipt Date: 20190423
  Transmission Date: 20190711
  Serious: Yes (Other)
  Sender: FDA-Public Use
  Company Number: BR-EMD SERONO-E2B_90051899

PATIENT
  Sex: Male

DRUGS (2)
  1. SAIZEN [Suspect]
     Active Substance: SOMATROPIN
     Indication: MUSCULOSKELETAL DISORDER
     Route: 058
     Dates: start: 20180210
  2. SAIZEN [Suspect]
     Active Substance: SOMATROPIN
     Indication: BODY HEIGHT BELOW NORMAL

REACTIONS (3)
  - Epiphyses premature fusion [Unknown]
  - Product dose omission [Unknown]
  - Treatment failure [Unknown]
